FAERS Safety Report 5304384-1 (Version None)
Quarter: 2007Q2

REPORT INFORMATION
  Report Type: 
  Country: None (occurrence: None)
  Receive Date: 20070419
  Receipt Date: 20070419
  Transmission Date: 20071010
  Serious: Yes (Death)
  Sender: FDA-Public Use
  Company Number: None

PATIENT
  Age: 64 Year
  Sex: Female

DRUGS (1)
  1. PAXIL [Suspect]
     Dosage: 37.5 MG BID PO
     Route: 048

REACTIONS (3)
  - CARDIAC ARREST [None]
  - PHARYNGOLARYNGEAL PAIN [None]
  - SEROTONIN SYNDROME [None]
